FAERS Safety Report 9668921 (Version 7)
Quarter: 2020Q2

REPORT INFORMATION
  Report Type: Spontaneous
  Country: GB (occurrence: GB)
  Receive Date: 20131105
  Receipt Date: 20200601
  Transmission Date: 20200714
  Serious: Yes (Life-Threatening, Hospitalization, Disabling, Other)
  Sender: FDA-Public Use
  Company Number: GB-MYLANLABS-2011S1018464

PATIENT
  Age: 27 Year
  Sex: Female
  Weight: 63.5 kg

DRUGS (27)
  1. SEROXAT [Interacting]
     Active Substance: PAROXETINE HYDROCHLORIDE
     Indication: DEPRESSION
     Dosage: 20 MG,TID (60MG, QD)
     Route: 048
     Dates: start: 19990801, end: 201105
  2. SEROXAT [Interacting]
     Active Substance: PAROXETINE HYDROCHLORIDE
     Dosage: 20 MILLIGRAM, QD
     Route: 048
     Dates: start: 201105, end: 20110706
  3. AMITRIPTYLINE [Interacting]
     Active Substance: AMITRIPTYLINE
     Indication: NEURALGIA
     Dosage: UNK
  4. TRAMADOL. [Interacting]
     Active Substance: TRAMADOL
     Dosage: 1 DOSAGE FORM, QD
     Route: 048
     Dates: start: 20081201, end: 20101210
  5. PROCYCLIDINE [Interacting]
     Active Substance: PROCYCLIDINE
     Indication: OCULOGYRIC CRISIS
     Dosage: 5 MILLIGRAM, QD
     Route: 048
     Dates: start: 1995, end: 1996
  6. CODEINE PHOSPHATE HYDRATE [Interacting]
     Active Substance: CODEINE PHOSPHATE
     Indication: SEROTONIN SYNDROME
     Dosage: UNK
     Route: 048
     Dates: start: 2008, end: 2008
  7. CODEINE PHOSPHATE HYDRATE [Interacting]
     Active Substance: CODEINE PHOSPHATE
     Dosage: 1 DOSAGE FORM, QD
     Route: 048
     Dates: start: 20110615, end: 20110723
  8. AMITRIPTYLINE [Interacting]
     Active Substance: AMITRIPTYLINE
     Indication: MUSCLE SPASMS
     Dosage: 25 MG,HS
     Dates: start: 20110810
  9. OMEPRAZOLE. [Suspect]
     Active Substance: OMEPRAZOLE
     Indication: DYSPEPSIA
     Dosage: 20 MG,QD
     Dates: start: 20110525
  10. TRAMADOL. [Interacting]
     Active Substance: TRAMADOL
     Indication: ANALGESIC THERAPY
     Dosage: 4 DOSAGE FORM, QD
     Route: 048
     Dates: start: 20080722
  11. CLONAZEPAM. [Interacting]
     Active Substance: CLONAZEPAM
     Indication: SEDATION
     Dosage: UNSURE
     Route: 048
     Dates: start: 20110224, end: 20110410
  12. DOMPERIDONE [Interacting]
     Active Substance: DOMPERIDONE
     Indication: PRODUCT USED FOR UNKNOWN INDICATION
     Dosage: UNK
  13. MIRTAZAPINE. [Interacting]
     Active Substance: MIRTAZAPINE
     Indication: DEPRESSION
     Dosage: 30 MG,QD,UNSURE
     Route: 048
     Dates: start: 20100923, end: 20101108
  14. CODEINE PHOSPHATE HYDRATE [Interacting]
     Active Substance: CODEINE PHOSPHATE
     Indication: ANALGESIC THERAPY
     Dosage: UNK
     Route: 048
     Dates: start: 2002, end: 2002
  15. LORAZEPAM. [Interacting]
     Active Substance: LORAZEPAM
     Indication: SEDATION
     Dosage: 1 MG,UNK
     Route: 048
     Dates: start: 20110224, end: 20110410
  16. PAROXETINE. [Interacting]
     Active Substance: PAROXETINE
     Indication: POST-TRAUMATIC STRESS DISORDER
     Dosage: 40 MG
     Route: 048
     Dates: start: 19990801, end: 20110706
  17. LORAZEPAM. [Interacting]
     Active Substance: LORAZEPAM
     Dosage: 1 MG,QD
     Route: 048
     Dates: start: 20110523, end: 20110627
  18. AMITRIPTYLINE [Interacting]
     Active Substance: AMITRIPTYLINE
     Indication: SEROTONIN SYNDROME
     Dosage: UNK
  19. DIAZEPAM. [Interacting]
     Active Substance: DIAZEPAM
     Dosage: UNK
     Dates: start: 20110725
  20. MIRTAZAPINE. [Interacting]
     Active Substance: MIRTAZAPINE
     Dosage: 20 MG,TID
     Route: 048
  21. MIRTAZAPINE. [Interacting]
     Active Substance: MIRTAZAPINE
     Dosage: 20 MG,BID
     Route: 048
  22. QUETIAPINE. [Interacting]
     Active Substance: QUETIAPINE
     Indication: PSYCHOTIC DISORDER
     Dosage: 300 MG
     Route: 048
     Dates: start: 20110224, end: 20110506
  23. PROCYCLIDINE [Interacting]
     Active Substance: PROCYCLIDINE
     Indication: EXTRAPYRAMIDAL DISORDER
     Dosage: 5 MG,TID/ 15 MG QD
     Route: 048
     Dates: start: 20110503, end: 20110510
  24. DIAZEPAM. [Concomitant]
     Active Substance: DIAZEPAM
     Dosage: UNK
  25. PAROXETINE. [Interacting]
     Active Substance: PAROXETINE
     Indication: DEPRESSION
     Dosage: 20 MILLIGRAM, TID/ 60 MG QD
     Dates: end: 201105
  26. DIAZEPAM. [Interacting]
     Active Substance: DIAZEPAM
     Indication: MUSCLE SPASMS
     Dosage: 5 MILLIGRAM, QD
     Dates: start: 20110725
  27. DIAZEPAM. [Interacting]
     Active Substance: DIAZEPAM
     Indication: SEROTONIN SYNDROME
     Dosage: 8 MILLIGRAM, QD
     Route: 048
     Dates: start: 20110725

REACTIONS (90)
  - Irritability [Unknown]
  - Suicidal ideation [Not Recovered/Not Resolved]
  - Seizure [Unknown]
  - Paraesthesia [Unknown]
  - Tachycardia [Unknown]
  - Aphasia [Not Recovered/Not Resolved]
  - Diarrhoea [Unknown]
  - Agitation [Unknown]
  - Delirium [Unknown]
  - Musculoskeletal stiffness [Unknown]
  - Feeling jittery [Unknown]
  - Arthralgia [Unknown]
  - Disturbance in attention [Unknown]
  - Swelling face [Unknown]
  - Facial paralysis [Unknown]
  - Pupillary light reflex tests abnormal [Unknown]
  - Paralysis [Unknown]
  - Anxiety [Unknown]
  - Hypoaesthesia oral [Unknown]
  - Mania [Unknown]
  - Sleep disorder [Unknown]
  - Blood sodium decreased [Unknown]
  - Depersonalisation/derealisation disorder [Not Recovered/Not Resolved]
  - Incontinence [Not Recovered/Not Resolved]
  - Hypoaesthesia [Not Recovered/Not Resolved]
  - Mouth swelling [Unknown]
  - Pallor [Unknown]
  - Exposure during pregnancy [Unknown]
  - Contusion [Unknown]
  - Tremor [Not Recovered/Not Resolved]
  - Depression [Unknown]
  - Decreased appetite [Unknown]
  - Menstruation irregular [Unknown]
  - Psychotic disorder [Unknown]
  - Malaise [Unknown]
  - Urinary retention [Unknown]
  - Vision blurred [Unknown]
  - Gait disturbance [Unknown]
  - Serotonin syndrome [Not Recovered/Not Resolved]
  - Drug interaction [Unknown]
  - Toxicity to various agents [Unknown]
  - Derealisation [Not Recovered/Not Resolved]
  - Fatigue [Unknown]
  - Premature labour [Unknown]
  - Confusional state [Not Recovered/Not Resolved]
  - Muscle disorder [Unknown]
  - Emotional disorder [Unknown]
  - Dizziness [Unknown]
  - Insomnia [Unknown]
  - Sensory loss [Unknown]
  - Feeling of body temperature change [Unknown]
  - Drug withdrawal syndrome [Unknown]
  - Mood swings [Unknown]
  - Vomiting [Unknown]
  - Nightmare [Unknown]
  - Feeling of despair [Unknown]
  - H1N1 influenza [Unknown]
  - Speech disorder [Unknown]
  - Cogwheel rigidity [Unknown]
  - Eye pain [Unknown]
  - Schizophrenia [Unknown]
  - Cyanosis [Unknown]
  - Restlessness [Unknown]
  - Skin discolouration [Not Recovered/Not Resolved]
  - Parosmia [Unknown]
  - Muscle spasms [Not Recovered/Not Resolved]
  - Asthenia [Unknown]
  - Visual impairment [Unknown]
  - Pruritus [Unknown]
  - Swollen tongue [Unknown]
  - Lip swelling [Unknown]
  - Drooling [Unknown]
  - Dystonia [Unknown]
  - Muscle rigidity [Unknown]
  - Hyperhidrosis [Unknown]
  - Dissociation [Not Recovered/Not Resolved]
  - Hallucinations, mixed [Unknown]
  - Heart rate increased [Unknown]
  - Dyspnoea [Unknown]
  - Headache [Unknown]
  - Myalgia [Unknown]
  - Balance disorder [Unknown]
  - Hyperchlorhydria [Unknown]
  - Tinnitus [Unknown]
  - Condition aggravated [Unknown]
  - Neuroleptic malignant syndrome [Unknown]
  - Mydriasis [Unknown]
  - Disorientation [Not Recovered/Not Resolved]
  - Menstrual disorder [Unknown]
  - Restless legs syndrome [Not Recovered/Not Resolved]

NARRATIVE: CASE EVENT DATE: 2003
